FAERS Safety Report 8795357 (Version 2)
Quarter: 2012Q4

REPORT INFORMATION
  Report Type: 
  Country: US (occurrence: US)
  Receive Date: 20120917
  Receipt Date: 20121005
  Transmission Date: 20130627
  Serious: Yes (Other)
  Sender: FDA-Public Use
  Company Number: US-PERRIGO-12US007902

PATIENT
  Age: 32 Year
  Sex: Female

DRUGS (5)
  1. OXYMETAZOLINE HYDROCHLORIDE [Suspect]
     Indication: NASAL CONGESTION
     Dosage: 2 sprays in each nostril, Once
     Route: 045
     Dates: start: 20120820, end: 20120820
  2. PROZAC [Concomitant]
     Indication: DEPRESSION
     Dosage: UNK, UNK
     Route: 048
  3. NSAID^S [Concomitant]
     Indication: PAIN
     Dosage: UNK, prn
     Route: 048
  4. FISH OIL [Concomitant]
     Indication: SUPPLEMENTATION THERAPY
     Dosage: UNK, UNK
     Route: 048
  5. GLUCOSAMINE CHONDROITIN [Concomitant]
     Indication: SUPPLEMENTATION THERAPY
     Dosage: UNK, UNK
     Route: 048

REACTIONS (2)
  - Ageusia [Recovering/Resolving]
  - Anosmia [Recovering/Resolving]
